FAERS Safety Report 8203252-5 (Version None)
Quarter: 2012Q1

REPORT INFORMATION
  Report Type: 
  Country: None (occurrence: None)
  Receive Date: 20120312
  Receipt Date: 20120306
  Transmission Date: 20120608
  Serious: Yes (Other)
  Sender: FDA-Public Use
  Company Number: DE-ROCHE-1034813

PATIENT
  Sex: Female
  Weight: 66 kg

DRUGS (5)
  1. NOVOTHYRAL [Concomitant]
     Route: 048
  2. RAMIPRIL [Concomitant]
     Indication: HYPERTENSION
     Route: 048
  3. METHOTREXATE [Concomitant]
     Indication: POLYARTHRITIS
     Route: 048
  4. BONIVA [Suspect]
     Indication: OSTEOPOROSIS
     Dates: end: 20111228
  5. METOPROLOL TARTRATE AND HYDROCHLOROTHIAZIDE [Concomitant]
     Indication: HYPERTENSION
     Route: 048

REACTIONS (5)
  - DRUG ERUPTION [None]
  - OEDEMA PERIPHERAL [None]
  - WRONG TECHNIQUE IN DRUG USAGE PROCESS [None]
  - LYMPHADENOPATHY [None]
  - HYPERSENSITIVITY [None]
